FAERS Safety Report 6307983-3 (Version None)
Quarter: 2009Q3

REPORT INFORMATION
  Report Type: 
  Country: None (occurrence: None)
  Receive Date: 20090813
  Receipt Date: 20090810
  Transmission Date: 20100115
  Serious: Yes (Hospitalization, Other)
  Sender: FDA-Public Use
  Company Number: US-ELI_LILLY_AND_COMPANY-US200908002080

PATIENT
  Sex: Female

DRUGS (10)
  1. HUMULIN N [Suspect]
     Dosage: 35 U, EACH MORNING
  2. HUMULIN N [Suspect]
     Dosage: 30 U, EACH EVENING
  3. HUMULIN N [Suspect]
     Dosage: 60 U, EACH MORNING
  4. HUMULIN N [Suspect]
     Dosage: 35 U, EACH EVENING
  5. HUMULIN R [Suspect]
     Dosage: UNK, AS NEEDED
  6. HUMULIN R [Suspect]
     Dosage: 15 U, UNK
  7. HUMULIN R [Suspect]
     Dosage: 6 U, UNK
  8. HUMULIN R [Suspect]
     Dosage: 10 U, UNK
  9. HUMALOG [Suspect]
     Dosage: 15 U, UNK
  10. METFORMIN [Concomitant]

REACTIONS (18)
  - ANXIETY [None]
  - ARTERIAL OCCLUSIVE DISEASE [None]
  - ASTHENIA [None]
  - BLOOD GLUCOSE INCREASED [None]
  - CONFUSIONAL STATE [None]
  - HOSPITALISATION [None]
  - HYPERHIDROSIS [None]
  - HYPOAESTHESIA ORAL [None]
  - HYPOGLYCAEMIA [None]
  - INCORRECT DOSE ADMINISTERED [None]
  - LOSS OF CONSCIOUSNESS [None]
  - MEMORY IMPAIRMENT [None]
  - RENAL DISORDER [None]
  - SYNCOPE [None]
  - URINARY TRACT INFECTION [None]
  - VISION BLURRED [None]
  - VOMITING [None]
  - WRONG DRUG ADMINISTERED [None]
